FAERS Safety Report 11423000 (Version 1)
Quarter: 2015Q3

REPORT INFORMATION
  Report Type: Spontaneous
  Country: US (occurrence: None)
  Receive Date: 20150826
  Receipt Date: 20150826
  Transmission Date: 20151125
  Serious: Yes (Life-Threatening)
  Sender: FDA-Public Use
  Company Number: None

PATIENT
  Age: 80 Year
  Sex: Male
  Weight: 66 kg

DRUGS (1)
  1. SUNITINIB [Suspect]
     Active Substance: SUNITINIB

REACTIONS (2)
  - Respiratory failure [None]
  - Cardiac failure [None]

NARRATIVE: CASE EVENT DATE: 20150823
